FAERS Safety Report 19323852 (Version 2)
Quarter: 2022Q1

REPORT INFORMATION
  Report Type: Spontaneous
  Country: US (occurrence: US)
  Receive Date: 20210528
  Receipt Date: 20220205
  Transmission Date: 20220423
  Serious: No
  Sender: FDA-Public Use
  Company Number: US-SA-SAC20210526001154

PATIENT
  Age: 73 Year
  Sex: Male

DRUGS (2)
  1. DUPIXENT [Suspect]
     Active Substance: DUPILUMAB
     Indication: Asthma
     Dosage: 300 MG, QOW
     Route: 058
     Dates: start: 20201229
  2. DUPIXENT [Suspect]
     Active Substance: DUPILUMAB
     Dosage: 300 MG, QOW
     Route: 058
     Dates: start: 20210515

REACTIONS (5)
  - Swelling face [Unknown]
  - Rash [Unknown]
  - Pain in extremity [Unknown]
  - Muscle tightness [Unknown]
  - Product use issue [Unknown]

NARRATIVE: CASE EVENT DATE: 20201229
